FAERS Safety Report 6419886-4 (Version None)
Quarter: 2009Q4

REPORT INFORMATION
  Report Type: 
  Country: None (occurrence: None)
  Receive Date: 20091029
  Receipt Date: 20091014
  Transmission Date: 20100525
  Serious: Yes (Other)
  Sender: FDA-Public Use
  Company Number: JP-MERCK-0910USA02065

PATIENT
  Age: 5 Year
  Weight: 6 kg

DRUGS (9)
  1. PEPCID [Suspect]
     Route: 048
     Dates: start: 20090908, end: 20090915
  2. TOMIRON [Concomitant]
     Route: 065
     Dates: start: 20090908, end: 20090911
  3. VITAMIN A [Concomitant]
     Route: 065
  4. JUVELA [Concomitant]
     Route: 065
  5. PHENOBARBITAL [Concomitant]
     Route: 065
  6. THYRADIN [Concomitant]
     Route: 065
  7. CORTRIL [Concomitant]
     Route: 065
  8. MONILAC [Concomitant]
     Route: 065
  9. LEVOCARNITINE HYDROCHLORIDE [Concomitant]
     Route: 065

REACTIONS (1)
  - DYSURIA [None]
